FAERS Safety Report 6054443-3 (Version None)
Quarter: 2009Q1

REPORT INFORMATION
  Report Type: 
  Country: None (occurrence: None)
  Receive Date: 20090127
  Receipt Date: 20090123
  Transmission Date: 20090719
  Serious: Yes (Death)
  Sender: FDA-Public Use
  Company Number: JP-B.I. PHARMACEUTICALS,INC./RIDGEFIELD-2009-BP-00312NB

PATIENT
  Age: 72 Year
  Sex: Female

DRUGS (9)
  1. MOBIC [Suspect]
     Indication: MUSCULOSKELETAL PAIN
     Dosage: 10MG
     Route: 048
     Dates: start: 20050415, end: 20050831
  2. PREDONINE [Suspect]
     Indication: MUSCULOSKELETAL PAIN
     Dosage: 5MG
     Route: 048
     Dates: start: 20050427, end: 20050831
  3. RHEUMATREX [Suspect]
     Indication: MUSCULOSKELETAL PAIN
     Dosage: 8MG
     Route: 048
     Dates: start: 20050421, end: 20050816
  4. REMICADE [Suspect]
     Indication: MUSCULOSKELETAL PAIN
     Dosage: 150MG
     Route: 042
     Dates: start: 20050712, end: 20050725
  5. BACTRIM [Suspect]
     Indication: PNEUMOCYSTIS JIROVECI PNEUMONIA
     Route: 042
     Dates: start: 20050825, end: 20050901
  6. BONALON [Concomitant]
     Indication: OSTEOPOROSIS
     Dosage: 5MG
     Route: 048
     Dates: start: 20050426, end: 20050831
  7. DIAGLICO [Concomitant]
     Indication: DIABETES MELLITUS
     Dosage: .5ANZ
     Route: 048
     Dates: start: 20050418, end: 20050831
  8. BASEN [Concomitant]
     Indication: DIABETES MELLITUS
     Dosage: .9MG
     Route: 048
     Dates: start: 20050418, end: 20050831
  9. MUCOSTA [Concomitant]
     Indication: GASTRITIS EROSIVE
     Dosage: 300MG
     Route: 048
     Dates: start: 20050415, end: 20050831

REACTIONS (4)
  - GASTROINTESTINAL HAEMORRHAGE [None]
  - INTERSTITIAL LUNG DISEASE [None]
  - PANCYTOPENIA [None]
  - PNEUMOCYSTIS JIROVECI PNEUMONIA [None]
